FAERS Safety Report 9114131 (Version 1)
Quarter: 2013Q1

REPORT INFORMATION
  Report Type: Report from Study
  Country: CA (occurrence: CA)
  Receive Date: 20130208
  Receipt Date: 20130208
  Transmission Date: 20140127
  Serious: Yes (Other)
  Sender: FDA-Public Use
  Company Number: CA-ABBOTT-13P-028-1046657-00

PATIENT
  Sex: Male
  Weight: 54.48 kg

DRUGS (3)
  1. HUMIRA [Suspect]
     Indication: PRODUCT USED FOR UNKNOWN INDICATION
     Dosage: UNKNOWN
     Route: 058
     Dates: start: 20100712, end: 20121129
  2. MEZAVANT [Concomitant]
     Indication: CROHN^S DISEASE
  3. IRON [Concomitant]
     Indication: CROHN^S DISEASE
     Route: 042

REACTIONS (4)
  - Intestinal perforation [Recovered/Resolved]
  - Gastrointestinal infection [Recovered/Resolved]
  - Feeling abnormal [Recovered/Resolved]
  - Weight decreased [Unknown]
